FAERS Safety Report 8046286-6 (Version None)
Quarter: 2012Q1

REPORT INFORMATION
  Report Type: 
  Country: None (occurrence: None)
  Receive Date: 20120113
  Receipt Date: 20120105
  Transmission Date: 20120608
  Serious: Yes (Other)
  Sender: FDA-Public Use
  Company Number: PHHY2012NZ001902

PATIENT
  Age: 42 Year
  Sex: Male

DRUGS (6)
  1. CLOZAPINE [Suspect]
     Dosage: 100 MG, DAILY
     Route: 065
  2. CLOZAPINE [Suspect]
     Dosage: 300 MG, DAILY
     Route: 065
  3. BENZTROPINE MESYLATE [Concomitant]
     Dosage: 2 MG, UNK
     Route: 065
  4. CITALOPRAM [Concomitant]
     Dosage: 20 MG, DAILY
     Route: 065
  5. CLONAZEPAM [Concomitant]
     Dosage: 0.25 MG, DAILY
     Route: 065
  6. CLOZAPINE [Suspect]
     Indication: SCHIZOPHRENIA
     Dosage: 300 MG
     Route: 065

REACTIONS (11)
  - DISORIENTATION [None]
  - ANTIPSYCHOTIC DRUG LEVEL INCREASED [None]
  - CONFUSIONAL STATE [None]
  - UPPER RESPIRATORY TRACT INFECTION [None]
  - WHITE BLOOD CELL COUNT INCREASED [None]
  - SCHIZOPHRENIA, DISORGANISED TYPE [None]
  - INSOMNIA [None]
  - PRODUCTIVE COUGH [None]
  - MENTAL DISORDER [None]
  - PYREXIA [None]
  - C-REACTIVE PROTEIN INCREASED [None]
